FAERS Safety Report 6919698-9 (Version None)
Quarter: 2010Q3

REPORT INFORMATION
  Report Type: 
  Country: None (occurrence: None)
  Receive Date: 20100811
  Receipt Date: 20100518
  Transmission Date: 20110219
  Serious: Yes (Other)
  Sender: FDA-Public Use
  Company Number: US-BRISTOL-MYERS SQUIBB COMPANY-15048853

PATIENT
  Age: 72 Year
  Sex: Male

DRUGS (1)
  1. IXEMPRA KIT [Suspect]
     Indication: PROSTATE CANCER
     Dosage: ONGOING
     Route: 042
     Dates: start: 20090923

REACTIONS (1)
  - MALIGNANT NEOPLASM PROGRESSION [None]
